FAERS Safety Report 13303907 (Version 1)
Quarter: 2017Q1

REPORT INFORMATION
  Report Type: Not Available
  Country: IN (occurrence: IN)
  Receive Date: 20170307
  Receipt Date: 20170307
  Transmission Date: 20170428
  Serious: Yes (Other)
  Sender: FDA-Public Use
  Company Number: IN--2017-IN-000026

PATIENT
  Age: 62 Year
  Sex: Male

DRUGS (4)
  1. ZOLPIDEM TARTRATE BRAND UNSPECIFIED (VIVIMED) [Suspect]
     Active Substance: ZOLPIDEM TARTRATE
     Indication: INSOMNIA
     Dosage: 5 MG
  2. METOPROLOL. [Concomitant]
     Active Substance: METOPROLOL
     Indication: PRODUCT USED FOR UNKNOWN INDICATION
     Dosage: 25 MG
  3. COMBINATION OF GLICLAZIDE 40 MG WITH METFORMIN 250 MG [Concomitant]
     Indication: PRODUCT USED FOR UNKNOWN INDICATION
     Dosage: TWICE DAILY
  4. FIXED DRUG COMBINATION OF ASPIRIN 75 MG AND ATORVASTATIN 10 MG [Concomitant]
     Indication: PRODUCT USED FOR UNKNOWN INDICATION
     Dosage: ONCE DAILY

REACTIONS (3)
  - Cholelithiasis [None]
  - Hyponatraemia [Recovered/Resolved]
  - Prostatomegaly [None]
